FAERS Safety Report 9341648 (Version 2)
Quarter: 2013Q3

REPORT INFORMATION
  Report Type: Spontaneous
  Country: US (occurrence: US)
  Receive Date: 20130611
  Receipt Date: 20130712
  Transmission Date: 20140515
  Serious: No
  Sender: FDA-Public Use
  Company Number: US-PFIZER INC-2013174119

PATIENT
  Age: 56 Year
  Sex: Female
  Weight: 58.5 kg

DRUGS (8)
  1. LIPITOR [Suspect]
     Indication: BLOOD CHOLESTEROL INCREASED
     Dosage: 10 MG, ONCE A DAY
     Route: 048
     Dates: start: 20130605, end: 20130606
  2. HUMALOG INSULIN [Concomitant]
     Dosage: UNK
  3. SYNTHROID [Concomitant]
     Dosage: UNK
  4. BENICAR [Concomitant]
     Dosage: UNK
  5. ACEON [Concomitant]
     Dosage: UNK
  6. CYMBALTA [Concomitant]
     Dosage: UNK
  7. ABILIFY [Concomitant]
     Dosage: UNK
  8. LAMOTRIGINE [Concomitant]
     Dosage: UNK

REACTIONS (1)
  - Vision blurred [Unknown]
